FAERS Safety Report 11782408 (Version 1)
Quarter: 2015Q4

REPORT INFORMATION
  Report Type: Report from Study
  Country: US (occurrence: US)
  Receive Date: 20151127
  Receipt Date: 20151127
  Transmission Date: 20160305
  Serious: Yes (Other)
  Sender: FDA-Public Use
  Company Number: PHEH2015US024506

PATIENT
  Age: 29 Year
  Sex: Male

DRUGS (6)
  1. DESMOPRESSIN [Concomitant]
     Active Substance: DESMOPRESSIN
     Indication: PROPHYLAXIS
     Route: 065
  2. BACTRIM [Concomitant]
     Active Substance: SULFAMETHOXAZOLE\TRIMETHOPRIM
     Indication: PROPHYLAXIS
     Dosage: UNK
     Route: 065
     Dates: start: 201511
  3. DEPAKOTE [Concomitant]
     Active Substance: DIVALPROEX SODIUM
     Indication: PRODUCT USED FOR UNKNOWN INDICATION
     Route: 065
  4. TOPAMAX [Concomitant]
     Active Substance: TOPIRAMATE
     Indication: PRODUCT USED FOR UNKNOWN INDICATION
     Route: 065
  5. RAPAMUNE [Concomitant]
     Active Substance: SIROLIMUS
     Indication: PROPHYLAXIS
     Route: 065
  6. AFINITOR [Suspect]
     Active Substance: EVEROLIMUS
     Indication: GANGLIOGLIOMA
     Dosage: 5 MG, QD
     Route: 048
     Dates: start: 20130919, end: 20140717

REACTIONS (1)
  - Seizure [Unknown]

NARRATIVE: CASE EVENT DATE: 20150911
